FAERS Safety Report 6619740-9 (Version None)
Quarter: 2010Q1

REPORT INFORMATION
  Report Type: 
  Country: None (occurrence: None)
  Receive Date: 20100303
  Receipt Date: 20100222
  Transmission Date: 20100710
  Serious: Yes (Death)
  Sender: FDA-Public Use
  Company Number: 006920

PATIENT
  Sex: Male

DRUGS (3)
  1. CIMZIA [Suspect]
     Indication: CROHN'S DISEASE
     Dosage: (SUBCUTANEOUS)
     Route: 058
     Dates: start: 20091120
  2. ZOLOFT [Concomitant]
  3. TRAMADOL HCL [Concomitant]

REACTIONS (2)
  - DRUG DOSE OMISSION [None]
  - TREATMENT NONCOMPLIANCE [None]
